FAERS Safety Report 5221767-9 (Version None)
Quarter: 2007Q1

REPORT INFORMATION
  Report Type: 
  Country: None (occurrence: None)
  Receive Date: 20070129
  Receipt Date: 20070119
  Transmission Date: 20070707
  Serious: Yes (Other)
  Sender: FDA-Public Use
  Company Number: CA-AVENTIS-200621498GDDC

PATIENT
  Age: 63 Year
  Sex: Female

DRUGS (8)
  1. FLAGYL [Suspect]
     Indication: DIVERTICULITIS
     Route: 042
     Dates: start: 19980430, end: 19980506
  2. AMPICILLIN [Concomitant]
     Route: 042
     Dates: start: 19980430, end: 19980501
  3. GENTAMICIN SULFATE [Concomitant]
     Indication: DIVERTICULITIS
     Route: 042
     Dates: start: 19980430, end: 19980506
  4. DYAZIDE [Concomitant]
     Indication: HYPERTENSION
     Dosage: DOSE: 1 TAB
     Route: 048
     Dates: start: 19980503
  5. LOSARTAN POTASSIUM [Concomitant]
     Indication: HYPERTENSION
     Route: 048
     Dates: start: 19980430
  6. VENTOLINE                          /00139501/ [Concomitant]
     Dosage: DOSE: 2 PUFFS Q 4 H
     Route: 055
     Dates: start: 19980501
  7. ATROVENT [Concomitant]
     Dosage: DOSE: 2 PUFFS
     Route: 055
     Dates: start: 19980501
  8. BECLOMETHASONE DIPROPIONATE [Concomitant]
     Dosage: DOSE: 2 PUFFS
     Route: 055
     Dates: start: 19980501

REACTIONS (4)
  - DYSPNOEA [None]
  - NASAL CONGESTION [None]
  - RASH MACULAR [None]
  - THROAT TIGHTNESS [None]
